FAERS Safety Report 6835458-1 (Version None)
Quarter: 2010Q3

REPORT INFORMATION
  Report Type: 
  Country: None (occurrence: None)
  Receive Date: 20100712
  Receipt Date: 20100712
  Transmission Date: 20110219
  Serious: Yes (Hospitalization)
  Sender: FDA-Public Use
  Company Number: None

PATIENT
  Sex: Male
  Weight: 80.7403 kg

DRUGS (20)
  1. REVLIMID [Suspect]
     Indication: MYELODYSPLASTIC SYNDROME
     Dosage: 20MG. DAILY ON DAYS 1-21 OF 28 DAY CYCLE ORAL
     Route: 048
     Dates: start: 20090305, end: 20090616
  2. NORVASC [Concomitant]
  3. ALLOPURINOL [Concomitant]
  4. VITAMIN B-12 [Concomitant]
  5. ASPIRIN [Concomitant]
  6. MAGNESIUM [Concomitant]
  7. VITAMIN D [Concomitant]
  8. POTASSIUM CHLORIDE [Concomitant]
  9. MULTI-VITAMIN [Concomitant]
  10. OXYBUTYMIN [Concomitant]
  11. OMEPRAZOLE [Concomitant]
  12. SIMVASTATIN [Concomitant]
  13. AMICAR [Concomitant]
  14. DOXAZOSIN [Concomitant]
  15. FIBER CHOICE [Concomitant]
  16. ASMANEX TWISTHALER [Concomitant]
  17. FORADIL [Concomitant]
  18. ALBUTEROL [Concomitant]
  19. FOLIC ACID [Concomitant]
  20. VITAMIN C [Concomitant]

REACTIONS (1)
  - PLATELET COUNT DECREASED [None]
